FAERS Safety Report 17008143 (Version 1)
Quarter: 2019Q4

REPORT INFORMATION
  Report Type: Spontaneous
  Country: DE (occurrence: DE)
  Receive Date: 20191108
  Receipt Date: 20191108
  Transmission Date: 20200122
  Serious: Yes (Hospitalization)
  Sender: FDA-Public Use
  Company Number: DE-TEVA-2019-DE-1132278

PATIENT
  Age: 91 Year
  Sex: Female

DRUGS (2)
  1. FUROSEMID-RATIOPHARM 40 MG TABLETTEN [Suspect]
     Active Substance: FUROSEMIDE
     Indication: OEDEMA PERIPHERAL
     Dosage: 40 MILLIGRAM DAILY;
     Route: 048
     Dates: start: 20191016
  2. CANDESARTAN ASTRA ZENECA [Concomitant]

REACTIONS (3)
  - Confusional state [Not Recovered/Not Resolved]
  - Fall [Not Recovered/Not Resolved]
  - Balance disorder [Not Recovered/Not Resolved]

NARRATIVE: CASE EVENT DATE: 201910
